FAERS Safety Report 6614445-2 (Version None)
Quarter: 2010Q1

REPORT INFORMATION
  Report Type: 
  Country: None (occurrence: None)
  Receive Date: 20100303
  Receipt Date: 20100303
  Transmission Date: 20100710
  Serious: Yes (Life-Threatening, Hospitalization)
  Sender: FDA-Public Use
  Company Number: None

PATIENT
  Age: 52 Year
  Sex: Male

DRUGS (3)
  1. NEOSTIGMINE [Suspect]
     Dosage: 2 MG IV
     Route: 042
  2. METHONIDAZOLE [Concomitant]
  3. CIPROFLOXACIN [Concomitant]

REACTIONS (1)
  - ELECTROMECHANICAL DISSOCIATION [None]
